FAERS Safety Report 14434783 (Version 1)
Quarter: 2018Q1

REPORT INFORMATION
  Report Type: Spontaneous
  Country: US (occurrence: US)
  Receive Date: 20180125
  Receipt Date: 20180125
  Transmission Date: 20180509
  Serious: Yes (Life-Threatening)
  Sender: FDA-Public Use
  Company Number: US-TORRENT-00003882

PATIENT
  Age: 44 Year
  Sex: Male
  Weight: 99 kg

DRUGS (2)
  1. DULOXETINE DELAYED-RELEASE CAPSULES, 60 MG [Suspect]
     Active Substance: DULOXETINE
     Indication: DEPRESSION
  2. CYMBALTA [Concomitant]
     Active Substance: DULOXETINE HYDROCHLORIDE
     Indication: PRODUCT USED FOR UNKNOWN INDICATION

REACTIONS (3)
  - Palpitations [Unknown]
  - Muscle twitching [Unknown]
  - Agitation [Unknown]

NARRATIVE: CASE EVENT DATE: 20171101
